FAERS Safety Report 21784356 (Version 1)
Quarter: 2022Q4

REPORT INFORMATION
  Report Type: Spontaneous
  Country: CA (occurrence: CA)
  Receive Date: 20221227
  Receipt Date: 20221227
  Transmission Date: 20230113
  Serious: Yes (Other)
  Sender: FDA-Public Use
  Company Number: CA-AstraZeneca-2022A408411

PATIENT
  Sex: Female
  Weight: 54 kg

DRUGS (5)
  1. TRASTUZUMAB DERUXTECAN [Suspect]
     Active Substance: TRASTUZUMAB DERUXTECAN
     Indication: Breast cancer metastatic
     Dosage: 238 MG, ONCE EVERY 56HR
     Route: 042
  2. TRASTUZUMAB DERUXTECAN [Suspect]
     Active Substance: TRASTUZUMAB DERUXTECAN
     Dosage: 5.4 MG/KG, ONCE EVERY 56HR
     Route: 042
  3. TRASTUZUMAB DERUXTECAN [Suspect]
     Active Substance: TRASTUZUMAB DERUXTECAN
     Dosage: 297 MG
     Route: 042
  4. TRASTUZUMAB DERUXTECAN [Suspect]
     Active Substance: TRASTUZUMAB DERUXTECAN
     Dosage: 297 MG, ONCE EVERY 56HR
     Route: 042
  5. TRASTUZUMAB DERUXTECAN [Suspect]
     Active Substance: TRASTUZUMAB DERUXTECAN
     Dosage: 238 MG, ONCE EVERY 12HR
     Route: 042

REACTIONS (12)
  - Drug hypersensitivity [Unknown]
  - Feeding disorder [Unknown]
  - Muscle spasms [Unknown]
  - Oropharyngeal pain [Unknown]
  - Toxicity to various agents [Unknown]
  - Weight decreased [Unknown]
  - Cough [Unknown]
  - Diarrhoea [Unknown]
  - Fatigue [Unknown]
  - Headache [Unknown]
  - Malaise [Unknown]
  - Nausea [Unknown]
